FAERS Safety Report 6145166 (Version 3)
Quarter: 2014Q2

REPORT INFORMATION
  Report Type: Spontaneous
  Country: US (occurrence: US)
  Receive Date: 20060929
  Receipt Date: 20140425
  Transmission Date: 20141212
  Serious: Yes (Hospitalization)
  Sender: FDA-Public Use
  Company Number: 2006BI013176

PATIENT
  Age: 47 Year
  Sex: Female

DRUGS (3)
  1. AVONEX [Suspect]
     Indication: MULTIPLE SCLEROSIS
     Route: 030
     Dates: start: 20000413, end: 200308
  2. AVONEX [Suspect]
     Indication: MULTIPLE SCLEROSIS
     Route: 030
     Dates: start: 200309
  3. COPAXONE [Concomitant]
     Indication: MULTIPLE SCLEROSIS
     Dates: start: 20070511

REACTIONS (8)
  - Kidney infection [Unknown]
  - Dysuria [Recovered/Resolved]
  - Nephrolithiasis [Unknown]
  - Renal failure [Unknown]
  - Renal failure acute [Unknown]
  - Bladder disorder [Unknown]
  - Respiratory failure [Unknown]
  - Chemotherapy [Unknown]
